FAERS Safety Report 6230156-X (Version None)
Quarter: 2009Q2

REPORT INFORMATION
  Report Type: 
  Country: None (occurrence: None)
  Receive Date: 20090615
  Receipt Date: 20090609
  Transmission Date: 20091009
  Serious: Yes (Hospitalization)
  Sender: FDA-Public Use
  Company Number: PHHO2009DE07180

PATIENT
  Sex: Male
  Weight: 18.1 kg

DRUGS (1)
  1. ELIDEL ASM+CRE [Suspect]
     Indication: DERMATITIS ATOPIC
     Dosage: APPLIED TWICE DAILY
     Route: 061
     Dates: start: 20050608

REACTIONS (6)
  - DYSPHAGIA [None]
  - EUSTACHIAN TUBE OPERATION [None]
  - OTITIS MEDIA [None]
  - POLYPECTOMY [None]
  - TONSILLAR HYPERTROPHY [None]
  - TONSILLECTOMY [None]
